FAERS Safety Report 7645855-2 (Version None)
Quarter: 2011Q3

REPORT INFORMATION
  Report Type: 
  Country: None (occurrence: None)
  Receive Date: 20110729
  Receipt Date: 20110722
  Transmission Date: 20111222
  Serious: Yes (Other)
  Sender: FDA-Public Use
  Company Number: PHHY2011HR65901

PATIENT
  Age: 57 Year
  Sex: Female

DRUGS (3)
  1. PHENOBARBITAL TAB [Suspect]
     Indication: GRAND MAL CONVULSION
     Dosage: 200 MG, BID
     Route: 048
     Dates: start: 20100501
  2. LAMOTRIGINE [Suspect]
     Indication: GRAND MAL CONVULSION
     Route: 048
     Dates: start: 20100501, end: 20100501
  3. TEGRETOL-XR [Suspect]
     Indication: GRAND MAL CONVULSION
     Dosage: 1600 MG, QD
     Route: 048
     Dates: start: 20100501

REACTIONS (2)
  - VERTIGO [None]
  - GAMMA-GLUTAMYLTRANSFERASE INCREASED [None]
